FAERS Safety Report 5724478-6 (Version None)
Quarter: 2008Q2

REPORT INFORMATION
  Report Type: 
  Country: None (occurrence: None)
  Receive Date: 20080429
  Receipt Date: 20080414
  Transmission Date: 20081010
  Serious: Yes (Death, Life-Threatening)
  Sender: FDA-Public Use
  Company Number: 2008032869

PATIENT
  Age: 68 Year
  Sex: Male
  Weight: 86 kg

DRUGS (1)
  1. FRAGMIN [Suspect]
     Indication: ANTICOAGULANT THERAPY
     Dosage: 5000 I.U.
     Dates: start: 20080324, end: 20080327

REACTIONS (2)
  - CARDIOGENIC SHOCK [None]
  - PULMONARY ARTERY THROMBOSIS [None]
